FAERS Safety Report 11517310 (Version 1)
Quarter: 2015Q3

REPORT INFORMATION
  Report Type: Spontaneous
  Country: US (occurrence: US)
  Receive Date: 20150917
  Receipt Date: 20150917
  Transmission Date: 20151125
  Serious: No
  Sender: FDA-Public Use
  Company Number: US-ASTRAZENECA-2015SE85111

PATIENT
  Sex: Female
  Weight: 95.3 kg

DRUGS (14)
  1. VITAMINS [Interacting]
     Active Substance: VITAMINS
     Route: 065
  2. OCUVITE [Concomitant]
     Active Substance: VITAMINS
  3. FUROSEMIDE. [Concomitant]
     Active Substance: FUROSEMIDE
  4. PRILOSEC [Suspect]
     Active Substance: OMEPRAZOLE MAGNESIUM
     Route: 048
  5. ZEMPLAR [Concomitant]
     Active Substance: PARICALCITOL
  6. PANTIN [Concomitant]
  7. TRAZODONE [Concomitant]
     Active Substance: TRAZODONE HYDROCHLORIDE
  8. VENLAFAXINE [Concomitant]
     Active Substance: VENLAFAXINE HYDROCHLORIDE
  9. BYDUREON [Interacting]
     Active Substance: EXENATIDE
     Indication: TYPE 2 DIABETES MELLITUS
     Route: 058
  10. GLIPIZIDE. [Concomitant]
     Active Substance: GLIPIZIDE
  11. XARELTO [Concomitant]
     Active Substance: RIVAROXABAN
  12. CENTRUM VITAMINS [Concomitant]
  13. MULTAQ [Concomitant]
     Active Substance: DRONEDARONE
  14. SINGULAIR [Concomitant]
     Active Substance: MONTELUKAST SODIUM

REACTIONS (5)
  - Drug interaction [Unknown]
  - Vomiting [Unknown]
  - Nausea [Unknown]
  - Diarrhoea [Unknown]
  - Headache [Unknown]
